FAERS Safety Report 4940616-7 (Version None)
Quarter: 2006Q1

REPORT INFORMATION
  Report Type: 
  Country: None (occurrence: None)
  Receive Date: 20060127
  Receipt Date: 20050225
  Transmission Date: 20060701
  Serious: Yes (Hospitalization)
  Sender: FDA-Public Use
  Company Number: 2005RL000019

PATIENT
  Age: 55 Year
  Sex: Female

DRUGS (4)
  1. PROPAFENONE HCL [Suspect]
     Indication: SINUS TACHYCARDIA
     Dosage: 150 MG;PO
     Route: 048
     Dates: start: 20041025, end: 20041106
  2. RALOXIFENE [Concomitant]
  3. CILAZAPRIL [Concomitant]
  4. PENICILLIN [Concomitant]

REACTIONS (1)
  - HEPATITIS CHOLESTATIC [None]
